FAERS Safety Report 13022187 (Version 1)
Quarter: 2016Q4

REPORT INFORMATION
  Report Type: Spontaneous
  Country: US (occurrence: US)
  Receive Date: 20161213
  Receipt Date: 20161213
  Transmission Date: 20170207
  Serious: No
  Sender: FDA-Public Use
  Company Number: US-PFIZER INC-2016566153

PATIENT
  Age: 24 Year
  Sex: Male
  Weight: 73 kg

DRUGS (3)
  1. ZANTAC [Concomitant]
     Active Substance: RANITIDINE HYDROCHLORIDE
     Dosage: UNK
  2. TESTOSTERONE. [Concomitant]
     Active Substance: TESTOSTERONE
     Dosage: UNK
  3. GENOTROPIN MQ [Suspect]
     Active Substance: SOMATROPIN
     Indication: GROWTH HORMONE DEFICIENCY
     Dosage: 0.6 MG, DAILY (START DATE: 10 YEARS)
     Route: 058
     Dates: start: 2006

REACTIONS (3)
  - Arthralgia [Unknown]
  - Joint lock [Unknown]
  - Joint crepitation [Unknown]

NARRATIVE: CASE EVENT DATE: 2014
